FAERS Safety Report 25024486 (Version 1)
Quarter: 2025Q1

REPORT INFORMATION
  Report Type: Spontaneous
  Country: IN (occurrence: IN)
  Receive Date: 20250228
  Receipt Date: 20250228
  Transmission Date: 20250408
  Serious: Yes (Other)
  Sender: PFIZER
  Company Number: IN-PFIZER INC-PV202500024055

PATIENT
  Age: 72 Year
  Sex: Female

DRUGS (4)
  1. DACOMITINIB [Suspect]
     Active Substance: DACOMITINIB
     Dosage: 15 MG, 1X/DAY
     Route: 048
  2. DACOMITINIB [Suspect]
     Active Substance: DACOMITINIB
     Route: 048
  3. DACOMITINIB [Suspect]
     Active Substance: DACOMITINIB
     Dosage: 30 MG, 1X/DAY
     Route: 048
  4. DACOMITINIB [Suspect]
     Active Substance: DACOMITINIB
     Dosage: 15 MG, 1X/DAY X 5 DAYS 1-0-0, ALTERNATE WITH 2-0-0/1-0-0 X15 DAYS
     Route: 048

REACTIONS (8)
  - Diabetes mellitus [Unknown]
  - Diarrhoea [Unknown]
  - Fatigue [Unknown]
  - Decreased appetite [Unknown]
  - Eastern Cooperative Oncology Group performance status abnormal [Unknown]
  - Stomatitis [Unknown]
  - Haemoglobin decreased [Unknown]
  - Platelet count abnormal [Unknown]
